FAERS Safety Report 17406733 (Version 1)
Quarter: 2020Q1

REPORT INFORMATION
  Report Type: Spontaneous
  Country: US (occurrence: US)
  Receive Date: 20200212
  Receipt Date: 20200212
  Transmission Date: 20200409
  Serious: No
  Sender: FDA-Public Use
  Company Number: US-ALLERGAN-1948776US

PATIENT
  Age: 19 Year
  Sex: Male

DRUGS (3)
  1. SEYSARA [Concomitant]
     Active Substance: SARECYCLINE HYDROCHLORIDE
     Indication: ACNE
  2. VIIBRYD [Suspect]
     Active Substance: VILAZODONE HYDROCHLORIDE
     Indication: DEPRESSION
     Dosage: 20 MG, QD
     Dates: start: 201909, end: 201911
  3. VIIBRYD [Suspect]
     Active Substance: VILAZODONE HYDROCHLORIDE
     Indication: ANXIETY
     Dosage: 10 MG, QD
     Dates: start: 201908, end: 201909

REACTIONS (2)
  - Acne [Recovering/Resolving]
  - Product use in unapproved indication [Unknown]

NARRATIVE: CASE EVENT DATE: 201909
